FAERS Safety Report 6597773-9 (Version None)
Quarter: 2010Q1

REPORT INFORMATION
  Report Type: 
  Country: None (occurrence: None)
  Receive Date: 20100216
  Receipt Date: 20100210
  Transmission Date: 20100710
  Serious: Yes (Death, Other)
  Sender: FDA-Public Use
  Company Number: 2009SP034369

PATIENT
  Age: 19 Year
  Sex: Female
  Weight: 69 kg

DRUGS (4)
  1. ESLAX (ROCURONIUM BROMIDE /01245702/) [Suspect]
     Indication: NEUROMUSCULAR BLOCKING THERAPY
     Dosage: 50 MG; IV
     Route: 042
     Dates: start: 20090206, end: 20090206
  2. ULTIVA [Suspect]
     Indication: INDUCTION OF ANAESTHESIA
     Dosage: 500 MCG; IV
     Route: 042
     Dates: start: 20090206, end: 20090206
  3. DIPRIVAN [Suspect]
     Indication: INDUCTION AND MAINTENANCE OF ANAESTHESIA
     Dosage: 50 ML; IV
     Route: 042
     Dates: start: 20090206, end: 20090206
  4. ATROPINE [Suspect]
     Indication: INDUCTION OF ANAESTHESIA
     Dosage: 0.5 MG; IV
     Route: 042
     Dates: start: 20090206, end: 20090206

REACTIONS (11)
  - BLOOD PRESSURE INCREASED [None]
  - BRAIN DEATH [None]
  - BRAIN OEDEMA [None]
  - CEREBRAL HYPOPERFUSION [None]
  - DRUG HYPERSENSITIVITY [None]
  - HEART RATE INCREASED [None]
  - HYPOXIC ENCEPHALOPATHY [None]
  - INTRACRANIAL PRESSURE INCREASED [None]
  - PULMONARY OEDEMA [None]
  - RESPIRATORY DEPRESSION [None]
  - STRESS CARDIOMYOPATHY [None]
